FAERS Safety Report 8398489-9 (Version None)
Quarter: 2012Q2

REPORT INFORMATION
  Report Type: 
  Country: None (occurrence: None)
  Receive Date: 20120531
  Receipt Date: 20120521
  Transmission Date: 20120825
  Serious: Yes (Hospitalization, Other)
  Sender: FDA-Public Use
  Company Number: US-ROCHE-1026947

PATIENT
  Age: 85 Year
  Sex: Male
  Weight: 81.72 kg

DRUGS (3)
  1. FUROSEMIDE [Concomitant]
  2. TENORMIN [Concomitant]
  3. AVASTIN [Suspect]
     Indication: AGE-RELATED MACULAR DEGENERATION
     Route: 031

REACTIONS (2)
  - CONFUSIONAL STATE [None]
  - BRAIN OEDEMA [None]
